FAERS Safety Report 20088204 (Version 3)
Quarter: 2021Q4

REPORT INFORMATION
  Report Type: Report from Study
  Country: US (occurrence: US)
  Receive Date: 20211118
  Receipt Date: 20211204
  Transmission Date: 20220304
  Serious: Yes (Other)
  Sender: FDA-Public Use
  Company Number: US-UCBSA-2021052920

PATIENT
  Sex: Female

DRUGS (2)
  1. BRIVARACETAM [Suspect]
     Active Substance: BRIVARACETAM
     Indication: Seizure
     Dosage: 100MG 1 TAB IN AM, .5 TAB AT NOON AND 1 TAB AT PM
  2. BRIVARACETAM [Suspect]
     Active Substance: BRIVARACETAM
     Indication: Epilepsy
     Dosage: 250 MILLIGRAM, 2X/DAY (BID)

REACTIONS (12)
  - Seizure [Not Recovered/Not Resolved]
  - Fall [Recovering/Resolving]
  - Rib fracture [Recovering/Resolving]
  - Head injury [Unknown]
  - Depression [Recovering/Resolving]
  - Intentional dose omission [Unknown]
  - Product availability issue [Unknown]
  - Intentional product misuse [Unknown]
  - Product use issue [Unknown]
  - Overdose [Unknown]
  - Inability to afford medication [Unknown]
  - Therapy interrupted [Unknown]

NARRATIVE: CASE EVENT DATE: 20210101
